FAERS Safety Report 25826700 (Version 3)
Quarter: 2025Q4

REPORT INFORMATION
  Report Type: Spontaneous
  Country: US (occurrence: US)
  Receive Date: 20250920
  Receipt Date: 20251022
  Transmission Date: 20260118
  Serious: No
  Sender: TOLMAR
  Company Number: US-Tolmar-TLM-2025-06304

PATIENT

DRUGS (3)
  1. ELIGARD [Suspect]
     Active Substance: LEUPROLIDE ACETATE
     Indication: Product used for unknown indication
     Dosage: 22.5 MG DOSE NOT ADMINISTERED?EXPIRATION DATE: DEC-2028; NOV-2026; 30-NOV-2026?SERIAL: 4450366614660
  2. ELIGARD [Suspect]
     Active Substance: LEUPROLIDE ACETATE
     Dosage: REPLACEMENT DOSE GIVEN
  3. DEVICE [Suspect]
     Active Substance: DEVICE
     Indication: Product used for unknown indication
     Dosage: 22.5 MG DOSE NOT ADMINISTERED?EXPIRATION DATE: DEC-2028; NOV-2026; 30-NOV-2026?SERIAL: 4450366614660

REACTIONS (4)
  - Intercepted product preparation error [Unknown]
  - Syringe issue [Unknown]
  - Wrong technique in product usage process [Unknown]
  - Product quality issue [Unknown]
